FAERS Safety Report 5664113-9 (Version None)
Quarter: 2008Q1

REPORT INFORMATION
  Report Type: 
  Country: None (occurrence: None)
  Receive Date: 20080314
  Receipt Date: 20080305
  Transmission Date: 20080703
  Serious: Yes (Other)
  Sender: FDA-Public Use
  Company Number: US-ROCHE-551226

PATIENT
  Age: 4 Year
  Sex: Female

DRUGS (2)
  1. TAMIFLU [Suspect]
     Indication: INFLUENZA
     Dosage: THE PATIENT WAS TAKING TAMIFLU BUT THE MOTHER WAS UNSURE OF THE DOSE.
     Route: 065
     Dates: start: 20080223, end: 20080228
  2. OMNICEF [Concomitant]
     Indication: DRUG USE FOR UNKNOWN INDICATION

REACTIONS (2)
  - AGGRESSION [None]
  - AGITATION [None]
